FAERS Safety Report 15642432 (Version 1)
Quarter: 2018Q4

REPORT INFORMATION
  Report Type: Spontaneous
  Country: ES (occurrence: ES)
  Receive Date: 20181121
  Receipt Date: 20181121
  Transmission Date: 20190205
  Serious: Yes (Other)
  Sender: FDA-Public Use
  Company Number: ES-TEVA-2018-ES-976323

PATIENT
  Age: 23 Year
  Sex: Male
  Weight: 78 kg

DRUGS (16)
  1. RIVOTRIL [Suspect]
     Active Substance: CLONAZEPAM
     Indication: ANXIETY
     Dosage: 0.5 MG, 3 TO 4 TIMES A DAY.
     Route: 048
     Dates: start: 2014
  2. ORFIDAL 1 MG COMPRIMIDOS, 50 COMPRIMIDOS [Suspect]
     Active Substance: LORAZEPAM
     Indication: ANXIETY
     Dosage: 1 MG IF ANXIETY CRISIS
     Route: 048
     Dates: start: 2015
  3. VITAMIN B COMPLEX [Suspect]
     Active Substance: CYANOCOBALAMIN\DEXPANTHENOL\NIACINAMIDE\PYRIDOXINE HYDROCHLORIDE\RIBOFLAVIN 5^-PHOSPHATE SODIUM\THIAMINE HYDROCHLORIDE\VITAMIN B COMPLEX
     Indication: ASTHENIA
     Dosage: 1 TABLET, 1 TIME A DAY IN THE MORNING
     Route: 048
     Dates: start: 2008
  4. CISTINA 250 MG COMPRIMIDOS , 40 COMPRIMIDOS [Suspect]
     Active Substance: CYSTINE
     Indication: ALOPECIA
     Dosage: 250 MILLIGRAM DAILY; 1 MORNING TABLET
     Route: 048
     Dates: start: 2012
  5. OMEGA 3 SIMPLY SUPPLEMENTS 1000 MG C?PSULAS BLANDAS EFG, 180 C?PSULAS [Suspect]
     Active Substance: OMEGA-3 FATTY ACIDS
     Indication: DEPRESSION
     Dosage: 2 CAPSULES IN THE MORNING
     Route: 048
  6. DEPRAX (TRAZODONE HYDROCHLORIDE) [Suspect]
     Active Substance: TRAZODONE HYDROCHLORIDE
     Indication: DEPRESSION
     Dosage: 50 MILLIGRAM DAILY; 50 MG, ONCE A DAY, AT BEDTIME REDUCED DOSE TO 25 MG, 1 TIME A DAY, WHEN LYING DO
     Route: 048
     Dates: start: 2014
  7. ZINC SIMPLY SUPLEMMENTS 15 MG COMPRIMIDOS, 360 COMPRIMIDOS [Suspect]
     Active Substance: ZINC
     Dosage: 15 MILLIGRAM DAILY;
     Route: 048
     Dates: start: 2018
  8. PARACETAMOL APOTEX 1 G COMPRIMIDOS EFG, 40 COMPRIMIDOS [Concomitant]
     Active Substance: ACETAMINOPHEN
     Indication: VIRAL TONSILLITIS
     Route: 065
     Dates: start: 20181005, end: 20181009
  9. VENLAFAXINA RETARD KRKA 37.5 MG CAPSULAS DURAS DE LIBERACION PROLONGAD [Suspect]
     Active Substance: VENLAFAXINE HYDROCHLORIDE
     Indication: DEPRESSION
     Dosage: 37.5 MG, 1 TIME A DAY IN THE MORNING
     Route: 048
     Dates: start: 2017
  10. GABAPENTINA CINFA 300 MG CAPSULAS DURAS EFG , 90 C?PSULAS [Suspect]
     Active Substance: GABAPENTIN
     Indication: ANXIETY
     Dosage: 900 MILLIGRAM DAILY;
     Route: 048
     Dates: start: 2017
  11. SUPER MAGNESIO 375 MG CON COMPLEJO DE VITAMINA B SIMPLY SUPPLEMENTS CO [Suspect]
     Active Substance: ASCORBIC ACID\MAGNESIUM\VITAMIN B COMPLEX
     Indication: ASTHENIA
     Dosage: 1 TABLET, 1 TIME A DAY IN THE MORNING
     Route: 048
     Dates: start: 20180601
  12. AMOXICILINA /ACIDO CLAVULANICO RATIOPHARM 500 MG/125 MG COMPRIMIDOS RE [Concomitant]
     Active Substance: AMOXICILLIN\CLAVULANIC ACID
     Indication: VIRAL TONSILLITIS
     Route: 065
     Dates: start: 20181005, end: 20181015
  13. DENUBIL 250 MG/180 MG SOLUCION ORAL , 20 AMPOLLAS BEBIBLES DE 5 ML [Suspect]
     Active Substance: DEANOL PIDOLATE\HEPTAMINOL HYDROCHLORIDE
     Indication: SOMNOLENCE
     Dosage: 2 DOSAGE FORMS DAILY; 1 BLISTER, 2 TIMES A DAY, ONE IN THE MORNING, ANOTHER IN THE AFTERNOON.
     Route: 048
     Dates: start: 2018
  14. VITAMIN B6 [Suspect]
     Active Substance: PYRIDOXINE HYDROCHLORIDE
     Indication: SOMNOLENCE
     Dosage: 50 MILLIGRAM DAILY;
     Route: 048
     Dates: start: 2018, end: 2018
  15. SEROXAT 20 MG COMPRIMIDOS RECUBIERTOS CON PELICULA, 56 COMPRIMIDOS [Suspect]
     Active Substance: PAROXETINE HYDROCHLORIDE
     Indication: GENERALISED ANXIETY DISORDER
     Dosage: 40 MILLIGRAM DAILY; 20MG, 2 TIMES A DAY, ONE IN THE MORNING, ANOTHER IN THE AFTERNOON.
     Route: 048
     Dates: start: 2014
  16. IBUPROFENO PENSA 600 MG COMPRIMIDOS RECUBIERTOS CON PELICULA EFG , 40 [Concomitant]
     Active Substance: IBUPROFEN
     Indication: VIRAL TONSILLITIS
     Route: 065
     Dates: start: 20181005, end: 20181008

REACTIONS (6)
  - Condition aggravated [Not Recovered/Not Resolved]
  - Somnolence [Not Recovered/Not Resolved]
  - Depression [Not Recovered/Not Resolved]
  - Agitation [Not Recovered/Not Resolved]
  - Memory impairment [Not Recovered/Not Resolved]
  - Anxiety [Not Recovered/Not Resolved]

NARRATIVE: CASE EVENT DATE: 2014
